FAERS Safety Report 11828669 (Version 1)
Quarter: 2015Q4

REPORT INFORMATION
  Report Type: Spontaneous
  Country: US (occurrence: US)
  Receive Date: 20151211
  Receipt Date: 20151211
  Transmission Date: 20160305
  Serious: No
  Sender: FDA-Public Use
  Company Number: US-JUBILANT CADISTA PHARMACEUTICALS-2015JUB00257

PATIENT
  Age: 53 Year
  Sex: Male
  Weight: 68.27 kg

DRUGS (3)
  1. KLONOPIN [Concomitant]
     Active Substance: CLONAZEPAM
     Dosage: 2 MG, 1X/DAY
  2. METHYLPREDNISOLONE. [Suspect]
     Active Substance: METHYLPREDNISOLONE
     Indication: PHARYNGEAL OEDEMA
     Dosage: UNK UNK, AS DIRECTED
     Route: 048
     Dates: start: 20150815, end: 20150820
  3. ATIVAN [Concomitant]
     Active Substance: LORAZEPAM
     Dosage: 3 MG, 1X/DAY

REACTIONS (2)
  - Hyperhidrosis [Not Recovered/Not Resolved]
  - Tinnitus [Not Recovered/Not Resolved]

NARRATIVE: CASE EVENT DATE: 20150815
